FAERS Safety Report 5106134-0 (Version None)
Quarter: 2006Q3

REPORT INFORMATION
  Report Type: 
  Country: None (occurrence: None)
  Receive Date: 20060912
  Receipt Date: 20060904
  Transmission Date: 20061208
  Serious: Yes (Other)
  Sender: FDA-Public Use
  Company Number: 2006-02043

PATIENT
  Sex: Male

DRUGS (1)
  1. VELCADE [Suspect]
     Indication: MULTIPLE MYELOMA
     Dosage: 2.50 MG

REACTIONS (6)
  - DISEASE RECURRENCE [None]
  - DRUG EFFECT DECREASED [None]
  - DYSSTASIA [None]
  - MALAISE [None]
  - NEUROPATHY [None]
  - PAIN IN EXTREMITY [None]
